FAERS Safety Report 10070992 (Version 1)
Quarter: 2014Q2

REPORT INFORMATION
  Report Type: Report from Study
  Country: HR (occurrence: HR)
  Receive Date: 20140410
  Receipt Date: 20140410
  Transmission Date: 20141212
  Serious: Yes (Other)
  Sender: FDA-Public Use
  Company Number: HR-GLAXOSMITHKLINE-B0984514A

PATIENT
  Age: 55 Year
  Sex: Male

DRUGS (1)
  1. VENTOLIN [Suspect]
     Indication: DYSPNOEA
     Route: 065

REACTIONS (1)
  - Hemiplegia [Unknown]
